FAERS Safety Report 8815681 (Version 1)
Quarter: 2012Q4

REPORT INFORMATION
  Report Type: 
  Country: US (occurrence: US)
  Receive Date: 20120928
  Receipt Date: 20120928
  Transmission Date: 20130627
  Serious: Yes (Other)
  Sender: FDA-Public Use
  Company Number: US-FRI-1000039050

PATIENT
  Sex: Female

DRUGS (2)
  1. VIIBRYD [Suspect]
  2. VIIBRYD [Suspect]

REACTIONS (9)
  - Aspiration [Unknown]
  - Mania [Recovered/Resolved]
  - Muscle spasms [Unknown]
  - Musculoskeletal stiffness [Unknown]
  - Vomiting [Unknown]
  - Diarrhoea [Unknown]
  - Constipation [Unknown]
  - Hyperhidrosis [Unknown]
  - Dizziness [Unknown]
